FAERS Safety Report 5421463-9 (Version None)
Quarter: 2007Q3

REPORT INFORMATION
  Report Type: 
  Country: None (occurrence: None)
  Receive Date: 20070817
  Receipt Date: 20070808
  Transmission Date: 20080115
  Serious: Yes (Other)
  Sender: FDA-Public Use
  Company Number: 200708AGG00692

PATIENT
  Age: 59 Year
  Sex: Male
  Weight: 75 kg

DRUGS (5)
  1. TIROFIBAN (MEDICURE, INC) [Suspect]
     Indication: CARDIAC ENZYMES INCREASED
     Dosage: (INTRAVENOUS NOT OTHERWISE SPECIFIED))
     Route: 042
     Dates: start: 20070730
  2. ASPIRIN [Concomitant]
  3. HEPARIN [Concomitant]
  4. INSULIN [Concomitant]
  5. CLOPIDOGREL BISULFATE [Concomitant]

REACTIONS (2)
  - CORONARY ARTERY STENOSIS [None]
  - MYOCARDIAL INFARCTION [None]
